FAERS Safety Report 6442294-7 (Version None)
Quarter: 2009Q4

REPORT INFORMATION
  Report Type: 
  Country: None (occurrence: None)
  Receive Date: 20091112
  Receipt Date: 20091102
  Transmission Date: 20100525
  Serious: Yes (Hospitalization)
  Sender: FDA-Public Use
  Company Number: 2009AL006983

PATIENT
  Age: 36 Year
  Sex: Female

DRUGS (1)
  1. SULFATRIM AND SULFTRIM PEDIATRIC SUSPENSION (SULFAMETHOXAZOLE/TRIMETHO [Suspect]
     Indication: BRONCHITIS
     Dosage: PO
     Route: 048

REACTIONS (1)
  - TOXIC EPIDERMAL NECROLYSIS [None]
